FAERS Safety Report 17773821 (Version 2)
Quarter: 2020Q2

REPORT INFORMATION
  Report Type: Spontaneous
  Country: DE (occurrence: DE)
  Receive Date: 20200513
  Receipt Date: 20200626
  Transmission Date: 20200714
  Serious: Yes (Other)
  Sender: FDA-Public Use
  Company Number: DE-SUN PHARMACEUTICAL INDUSTRIES LTD-2020RR-246748

PATIENT
  Age: 36 Year
  Sex: Female
  Weight: 51 kg

DRUGS (2)
  1. CIPRO BASICS 500MG FILMTABLETTEN [Suspect]
     Active Substance: CIPROFLOXACIN HYDROCHLORIDE
     Indication: RENAL PAIN
     Dosage: ALLE 12 H EINE TABLETTE A 500MG
     Route: 048
     Dates: start: 20191206, end: 20191210
  2. CIPRO BASICS 500MG FILMTABLETTEN [Suspect]
     Active Substance: CIPROFLOXACIN HYDROCHLORIDE
     Indication: DYSURIA

REACTIONS (26)
  - Weight decreased [Recovered/Resolved]
  - Myalgia [Recovering/Resolving]
  - Ocular discomfort [Recovering/Resolving]
  - Tendon pain [Recovered/Resolved]
  - Muscular weakness [Recovered/Resolved]
  - Heart rate increased [Not Recovered/Not Resolved]
  - Malaise [Recovering/Resolving]
  - Restlessness [Not Recovered/Not Resolved]
  - Eye pain [Recovering/Resolving]
  - Blindness transient [Recovered/Resolved]
  - Tachycardia [Not Recovered/Not Resolved]
  - Dizziness [Recovering/Resolving]
  - Arthralgia [Not Recovered/Not Resolved]
  - Disturbance in attention [Not Recovered/Not Resolved]
  - Panic attack [Not Recovered/Not Resolved]
  - Memory impairment [Recovering/Resolving]
  - Migraine [Recovering/Resolving]
  - Joint noise [Not Recovered/Not Resolved]
  - Swelling [Recovering/Resolving]
  - Visual impairment [Recovering/Resolving]
  - Sudden hearing loss [Recovering/Resolving]
  - Insomnia [Not Recovered/Not Resolved]
  - Peripheral coldness [Recovering/Resolving]
  - Muscle tightness [Recovering/Resolving]
  - Decreased appetite [Recovered/Resolved]
  - Foreign body sensation in eyes [Recovered/Resolved]

NARRATIVE: CASE EVENT DATE: 201912
